FAERS Safety Report 7131009-5 (Version None)
Quarter: 2010Q4

REPORT INFORMATION
  Report Type: 
  Country: None (occurrence: None)
  Receive Date: 20101201
  Receipt Date: 20101123
  Transmission Date: 20110411
  Serious: Yes (Other)
  Sender: FDA-Public Use
  Company Number: A0897081A

PATIENT
  Age: 63 Year
  Sex: Female

DRUGS (3)
  1. VERAMYST [Suspect]
     Indication: PRODUCT USED FOR UNKNOWN INDICATION
     Route: 045
     Dates: start: 20101001, end: 20101001
  2. XOPENEX [Suspect]
     Indication: ASTHMA
     Dosage: 45MCG VARIABLE DOSE
     Route: 055
     Dates: start: 20100101, end: 20100101
  3. PULMICORT [Concomitant]

REACTIONS (6)
  - ASTHMA [None]
  - CONDITION AGGRAVATED [None]
  - DRUG INEFFECTIVE [None]
  - INHALATION THERAPY [None]
  - JAUNDICE [None]
  - WHEEZING [None]
